FAERS Safety Report 8641966 (Version 4)
Quarter: 2012Q4

REPORT INFORMATION
  Report Type: 
  Country: US (occurrence: US)
  Receive Date: 20120628
  Receipt Date: 20121214
  Transmission Date: 20130627
  Serious: Yes (Death, Hospitalization, Other)
  Sender: FDA-Public Use
  Company Number: US-MPIJNJ-2011-06309

PATIENT
  Age: 85 Year
  Sex: Male
  Weight: 71.4 kg

DRUGS (22)
  1. VELCADE [Suspect]
     Indication: MULTIPLE MYELOMA
     Dosage: 1.3 mg/m2, Cyclic
     Route: 042
     Dates: start: 20100928, end: 20101008
  2. DEXAMETHASONE [Suspect]
     Indication: MULTIPLE MYELOMA
  3. ASPIRIN [Concomitant]
     Indication: PRODUCT USED FOR UNKNOWN INDICATION
     Dosage: 81 mg, UNK
  4. BENICAR [Concomitant]
     Indication: PRODUCT USED FOR UNKNOWN INDICATION
     Dosage: 10 mg, UNK
  5. CALCIUM [Concomitant]
     Indication: PRODUCT USED FOR UNKNOWN INDICATION
  6. VITAMIN D /00107901/ [Concomitant]
     Indication: PRODUCT USED FOR UNKNOWN INDICATION
  7. COREG [Concomitant]
     Indication: PRODUCT USED FOR UNKNOWN INDICATION
     Dosage: 12.5 mg, UNK
  8. COUMADIN                           /00014802/ [Concomitant]
     Indication: PRODUCT USED FOR UNKNOWN INDICATION
     Dosage: 2.5 mg, UNK
  9. DIPYRIDAMOLE [Concomitant]
     Indication: PRODUCT USED FOR UNKNOWN INDICATION
  10. FUROSEMIDE [Concomitant]
     Indication: PRODUCT USED FOR UNKNOWN INDICATION
     Dosage: 80 mg, UNK
     Route: 048
  11. PACERONE [Concomitant]
     Indication: PRODUCT USED FOR UNKNOWN INDICATION
  12. SAW PALMETTO                       /00833501/ [Concomitant]
     Indication: PRODUCT USED FOR UNKNOWN INDICATION
  13. TEMAZEPAM [Concomitant]
     Indication: PRODUCT USED FOR UNKNOWN INDICATION
  14. UROXATRAL [Concomitant]
     Indication: PRODUCT USED FOR UNKNOWN INDICATION
  15. ACETAMINOPHEN [Concomitant]
     Indication: PRODUCT USED FOR UNKNOWN INDICATION
  16. ALFUZOSIN HYDROCHLORIDE [Concomitant]
     Indication: PRODUCT USED FOR UNKNOWN INDICATION
  17. AMIODARONE [Concomitant]
     Indication: PRODUCT USED FOR UNKNOWN INDICATION
     Dosage: 200 mg, UNK
     Route: 048
  18. ATORVASTATIN [Concomitant]
     Indication: PRODUCT USED FOR UNKNOWN INDICATION
  19. CARVEDILOL [Concomitant]
     Indication: PRODUCT USED FOR UNKNOWN INDICATION
  20. DIPHENHYDRAMINE [Concomitant]
     Indication: PRODUCT USED FOR UNKNOWN INDICATION
  21. SODIUM [Concomitant]
     Indication: PRODUCT USED FOR UNKNOWN INDICATION
  22. PERSANTINE [Suspect]
     Indication: PRODUCT USED FOR UNKNOWN INDICATION
     Dosage: 75 mg, UNK

REACTIONS (10)
  - Haemorrhage [Recovering/Resolving]
  - Biopsy kidney [Unknown]
  - Pneumonia [Fatal]
  - Renal failure acute [Recovered/Resolved with Sequelae]
  - Anaemia [Recovered/Resolved with Sequelae]
  - Thrombocytopenia [Recovered/Resolved with Sequelae]
  - Oedema peripheral [Unknown]
  - Cough [Unknown]
  - Dyspnoea exertional [Unknown]
  - Orthopnoea [Unknown]
